FAERS Safety Report 9795999 (Version 2)
Quarter: 2014Q3

REPORT INFORMATION
  Report Type: Spontaneous
  Country: US (occurrence: US)
  Receive Date: 20140103
  Receipt Date: 20140801
  Transmission Date: 20150326
  Serious: Yes (Hospitalization, Other)
  Sender: FDA-Public Use
  Company Number: US-009507513-1401USA000363

PATIENT
  Sex: Female

DRUGS (1)
  1. NUVARING [Suspect]
     Active Substance: ETHINYL ESTRADIOL\ETONOGESTREL
     Dosage: UNK
     Route: 067
     Dates: start: 200707

REACTIONS (10)
  - Pulmonary hypertension [Unknown]
  - Hypertension [Unknown]
  - Aortic thrombosis [Unknown]
  - Pulmonary embolism [Unknown]
  - Seasonal allergy [Unknown]
  - Hypothermia [Recovered/Resolved]
  - Pulmonary endarterectomy [Unknown]
  - Asthma [Unknown]
  - Circulatory collapse [Recovered/Resolved]
  - Vena cava filter insertion [Unknown]

NARRATIVE: CASE EVENT DATE: 200709
